FAERS Safety Report 19394475 (Version 2)
Quarter: 2021Q3

REPORT INFORMATION
  Report Type: Report from Study
  Country: US (occurrence: US)
  Receive Date: 20210609
  Receipt Date: 20210924
  Transmission Date: 20211014
  Serious: No
  Sender: FDA-Public Use
  Company Number: NVSC2021US129983

PATIENT
  Age: 18 Year
  Sex: Female

DRUGS (1)
  1. GILENYA [Suspect]
     Active Substance: FINGOLIMOD HYDROCHLORIDE
     Indication: MULTIPLE SCLEROSIS
     Dosage: 0.5 MG, QD
     Route: 048
     Dates: start: 20210608

REACTIONS (2)
  - Fatigue [Unknown]
  - Headache [Unknown]

NARRATIVE: CASE EVENT DATE: 20210608
